FAERS Safety Report 20420714 (Version 3)
Quarter: 2022Q1

REPORT INFORMATION
  Report Type: Spontaneous
  Country: ES (occurrence: ES)
  Receive Date: 20220203
  Receipt Date: 20220304
  Transmission Date: 20220423
  Serious: Yes (Other)
  Sender: FDA-Public Use
  Company Number: ES-SA-SAC20220129000318

PATIENT
  Sex: Female

DRUGS (4)
  1. CEREZYME [Suspect]
     Active Substance: IMIGLUCERASE
     Indication: Gaucher^s disease
     Dosage: UNK
     Route: 041
  2. CEREZYME [Suspect]
     Active Substance: IMIGLUCERASE
     Dosage: 26 U/KG, QOW
     Route: 041
  3. CEREZYME [Suspect]
     Active Substance: IMIGLUCERASE
     Dosage: 60 U/KG, QOW
     Route: 041
  4. PEMBROLIZUMAB [Concomitant]
     Active Substance: PEMBROLIZUMAB
     Indication: Immunochemotherapy
     Dosage: 200 MG, EVERY 21 DAYS

REACTIONS (11)
  - Neoplasm malignant [Unknown]
  - Osteomyelitis chronic [Unknown]
  - Marjolin^s ulcer [Unknown]
  - Postoperative wound infection [Not Recovered/Not Resolved]
  - Wound complication [Not Recovered/Not Resolved]
  - Feeling hot [Not Recovered/Not Resolved]
  - General physical health deterioration [Unknown]
  - Neoplasm [Unknown]
  - Leg amputation [Unknown]
  - Incorrect dose administered [Unknown]
  - Intentional dose omission [Unknown]

NARRATIVE: CASE EVENT DATE: 20211101
